FAERS Safety Report 7969639-0 (Version None)
Quarter: 2011Q4

REPORT INFORMATION
  Report Type: 
  Country: None (occurrence: None)
  Receive Date: 20111208
  Receipt Date: 20111128
  Transmission Date: 20120403
  Serious: Yes (Death, Other)
  Sender: FDA-Public Use
  Company Number: 2011P1013469

PATIENT
  Sex: Male

DRUGS (1)
  1. HEPARIN [Suspect]

REACTIONS (5)
  - FOOT AMPUTATION [None]
  - NAUSEA [None]
  - FINGER AMPUTATION [None]
  - RENAL DISORDER [None]
  - RASH [None]
